FAERS Safety Report 21397935 (Version 5)
Quarter: 2022Q4

REPORT INFORMATION
  Report Type: Report from Study
  Country: ES (occurrence: ES)
  Receive Date: 20220930
  Receipt Date: 20221102
  Transmission Date: 20230113
  Serious: Yes (Hospitalization)
  Sender: FDA-Public Use
  Company Number: ES-ABBVIE-4131488

PATIENT
  Age: 63 Year
  Sex: Female
  Weight: 67 kg

DRUGS (7)
  1. UPADACITINIB [Suspect]
     Active Substance: UPADACITINIB
     Indication: Rheumatoid arthritis
     Route: 048
     Dates: start: 20181023, end: 20220725
  2. OMEPRAZOLE [Concomitant]
     Active Substance: OMEPRAZOLE
     Indication: Prophylaxis against gastrointestinal ulcer
     Route: 048
     Dates: start: 20141230
  3. ARAVA [Concomitant]
     Active Substance: LEFLUNOMIDE
     Indication: Rheumatoid arthritis
     Route: 048
     Dates: start: 20141230, end: 20220725
  4. TRAMADOL HYDROCHLORIDE [Concomitant]
     Active Substance: TRAMADOL HYDROCHLORIDE
     Indication: Rheumatoid arthritis
     Route: 048
     Dates: start: 20160527
  5. CETRAXAL [Concomitant]
     Active Substance: CIPROFLOXACIN
     Indication: Keratosis obturans
     Dosage: DOSAGE: 0.25 MG/ML EXTERNAL AUDITORY
     Dates: start: 20181025
  6. DEFLAZACORT [Concomitant]
     Active Substance: DEFLAZACORT
     Indication: Rheumatoid arthritis
     Route: 048
     Dates: start: 20160527
  7. DICLOFENAC [Concomitant]
     Active Substance: DICLOFENAC
     Indication: Rheumatoid arthritis
     Route: 048
     Dates: start: 20160401

REACTIONS (1)
  - Medical device site abscess [Not Recovered/Not Resolved]

NARRATIVE: CASE EVENT DATE: 20220725
